FAERS Safety Report 10377506 (Version 1)
Quarter: 2014Q3

REPORT INFORMATION
  Report Type: Spontaneous
  Country: US (occurrence: US)
  Receive Date: 20140812
  Receipt Date: 20140812
  Transmission Date: 20150326
  Serious: Yes (Other)
  Sender: FDA-Public Use
  Company Number: PHHY2014US097962

PATIENT
  Age: 59 Year
  Sex: Female

DRUGS (9)
  1. POTASSIUM [Concomitant]
     Active Substance: POTASSIUM
     Dosage: UNK UKN, UNK
     Route: 048
  2. FOLIC ACID. [Concomitant]
     Active Substance: FOLIC ACID
     Dosage: UNK UKN, UNK
  3. ENALAPRIL MALEATE. [Concomitant]
     Active Substance: ENALAPRIL MALEATE
     Dosage: UNK UKN, UNK
     Route: 048
  4. ZYRTEC [Concomitant]
     Active Substance: CETIRIZINE HYDROCHLORIDE
     Dosage: UNK UKN, UNK
  5. ZOMETA [Suspect]
     Active Substance: ZOLEDRONIC ACID
     Dosage: 4 MG, QW (1 PER WEEK)
     Route: 042
     Dates: start: 20060626
  6. XELODA [Suspect]
     Active Substance: CAPECITABINE
     Dosage: 2150 MG (2DF)
     Route: 048
     Dates: start: 20060607
  7. VITAMIN B6 [Concomitant]
     Active Substance: PYRIDOXINE HYDROCHLORIDE
     Dosage: UNK UKN, UNK
  8. ZOLOFT [Concomitant]
     Active Substance: SERTRALINE HYDROCHLORIDE
     Dosage: UNK UKN, UNK
     Route: 048
  9. XELODA [Suspect]
     Active Substance: CAPECITABINE
     Indication: BREAST CANCER METASTATIC
     Dosage: UNK UKN, UNK
     Route: 048

REACTIONS (6)
  - Maculopathy [Unknown]
  - Intraocular pressure increased [Unknown]
  - Papilloedema [Recovering/Resolving]
  - Vitreous detachment [Unknown]
  - Optic neuropathy [Recovering/Resolving]
  - Cataract nuclear [Unknown]
